FAERS Safety Report 7624999-5 (Version None)
Quarter: 2011Q3

REPORT INFORMATION
  Report Type: 
  Country: None (occurrence: None)
  Receive Date: 20110721
  Receipt Date: 20110711
  Transmission Date: 20111222
  Serious: Yes (Hospitalization)
  Sender: FDA-Public Use
  Company Number: US-BIOGENIDEC-2011BI024975

PATIENT
  Age: 70 Year
  Sex: Female

DRUGS (1)
  1. AVONEX [Suspect]
     Indication: MULTIPLE SCLEROSIS
     Route: 030
     Dates: start: 19960601

REACTIONS (6)
  - MOVEMENT DISORDER [None]
  - DISORIENTATION [None]
  - MEMORY IMPAIRMENT [None]
  - FEELING ABNORMAL [None]
  - FEELING OF BODY TEMPERATURE CHANGE [None]
  - PAIN [None]
